FAERS Safety Report 9129482 (Version 1)
Quarter: 2013Q1

REPORT INFORMATION
  Report Type: Spontaneous
  Country: US (occurrence: US)
  Receive Date: 20130125
  Receipt Date: 20130125
  Transmission Date: 20140127
  Serious: Yes (Other)
  Sender: FDA-Public Use
  Company Number: US-PFIZER INC-2013031289

PATIENT
  Age: 77 Year
  Sex: Male
  Weight: 63.49 kg

DRUGS (3)
  1. LYRICA [Suspect]
     Indication: NEURALGIA
     Dosage: 75 MG, 1X/DAY
     Route: 048
  2. CELEBREX [Suspect]
     Indication: ARTHRITIS
     Dosage: 300 MG, 1X/DAY
     Route: 048
  3. DETROL LA [Suspect]
     Indication: BLADDER DYSFUNCTION
     Dosage: 2 MG, 1X/DAY
     Route: 048

REACTIONS (2)
  - Nerve injury [Unknown]
  - Gait disturbance [Unknown]
